FAERS Safety Report 8128252-5 (Version None)
Quarter: 2012Q1

REPORT INFORMATION
  Report Type: 
  Country: None (occurrence: None)
  Receive Date: 20120210
  Receipt Date: 20120207
  Transmission Date: 20120608
  Serious: Yes (Other)
  Sender: FDA-Public Use
  Company Number: US-ROCHE-793917

PATIENT
  Sex: Male
  Weight: 68.1 kg

DRUGS (5)
  1. BUSPIRONE HCL [Concomitant]
     Indication: ANXIETY
  2. ACCUTANE [Suspect]
     Dates: start: 19860101, end: 19870101
  3. CLONAZEPAM [Concomitant]
  4. ACCUTANE [Suspect]
     Indication: ACNE
     Route: 065
     Dates: start: 19850101, end: 19860101
  5. ARIPIPRAZOL [Concomitant]
     Indication: DEPRESSION

REACTIONS (2)
  - INFLAMMATORY BOWEL DISEASE [None]
  - IRRITABLE BOWEL SYNDROME [None]
